FAERS Safety Report 15989464 (Version 1)
Quarter: 2019Q1

REPORT INFORMATION
  Report Type: Spontaneous
  Country: US (occurrence: US)
  Receive Date: 20190221
  Receipt Date: 20190221
  Transmission Date: 20190418
  Serious: No
  Sender: FDA-Public Use
  Company Number: None

PATIENT
  Age: 33 Year
  Sex: Female
  Weight: 72 kg

DRUGS (3)
  1. MAKENA [Suspect]
     Active Substance: HYDROXYPROGESTERONE CAPROATE
     Indication: PREMATURE LABOUR
     Dosage: 1 INJECTION(S); ONCE WEEKLY; INJECTED INTO BACK ON ARM?
     Dates: start: 20190129, end: 20190219
  2. MAKENA [Suspect]
     Active Substance: HYDROXYPROGESTERONE CAPROATE
     Indication: PROPHYLAXIS
     Dosage: 1 INJECTION(S); ONCE WEEKLY; INJECTED INTO BACK ON ARM?
     Dates: start: 20190129, end: 20190219
  3. PRENATAL VITAMIN [Concomitant]
     Active Substance: VITAMINS

REACTIONS (7)
  - Urticaria [None]
  - Haemorrhage [None]
  - Injection site pain [None]
  - Injection site induration [None]
  - Injection site warmth [None]
  - Pruritus [None]
  - Contusion [None]

NARRATIVE: CASE EVENT DATE: 20190202
